FAERS Safety Report 11422187 (Version 3)
Quarter: 2015Q4

REPORT INFORMATION
  Report Type: Spontaneous
  Country: US (occurrence: US)
  Receive Date: 20150827
  Receipt Date: 20151013
  Transmission Date: 20160304
  Serious: Yes (Hospitalization)
  Sender: FDA-Public Use
  Company Number: US-BEH-2015053452

PATIENT
  Age: 52 Year
  Sex: Male
  Weight: 63 kg

DRUGS (23)
  1. PRIVIGEN [Suspect]
     Active Substance: HUMAN IMMUNOGLOBULIN G
     Dosage: 70 G TOTAL
     Route: 042
     Dates: start: 20150610, end: 20150619
  2. TACROLIMUS. [Concomitant]
     Active Substance: TACROLIMUS
  3. CLONIDINE. [Concomitant]
     Active Substance: CLONIDINE
  4. PIPERACILLIN AND TAZOBACTAM [Concomitant]
     Active Substance: PIPERACILLIN SODIUM\TAZOBACTAM SODIUM
  5. PRIVIGEN [Suspect]
     Active Substance: HUMAN IMMUNOGLOBULIN G
  6. FOLIC ACID. [Concomitant]
     Active Substance: FOLIC ACID
  7. RITUXIMAB [Concomitant]
     Active Substance: RITUXIMAB
  8. ANTI-THYMOCYTE GLOBULION (RABBIT) [Concomitant]
  9. CALCITRIOL. [Concomitant]
     Active Substance: CALCITRIOL
  10. PANTOPRAZOLE [Concomitant]
     Active Substance: PANTOPRAZOLE SODIUM
  11. VANCOMYCIN [Concomitant]
     Active Substance: VANCOMYCIN
  12. CALCIUM CARBONATE. [Concomitant]
     Active Substance: CALCIUM CARBONATE
  13. CIPROFLOXACIN. [Concomitant]
     Active Substance: CIPROFLOXACIN
  14. MAGNESIUM OXIDE. [Concomitant]
     Active Substance: MAGNESIUM OXIDE
  15. MYCOPHENOLATE MOFETIL. [Concomitant]
     Active Substance: MYCOPHENOLATE MOFETIL
  16. PREDNISONE. [Concomitant]
     Active Substance: PREDNISONE
  17. PROCALCIFEROL [Concomitant]
  18. VALGANCICLOVIR [Concomitant]
     Active Substance: VALGANCICLOVIR
  19. PRIVIGEN [Suspect]
     Active Substance: HUMAN IMMUNOGLOBULIN G
     Indication: RENAL TRANSPLANT
  20. ALBUMIN [Concomitant]
     Active Substance: ALBUMIN (HUMAN)
  21. AMLODIPINE [Concomitant]
     Active Substance: AMLODIPINE BESYLATE
  22. GANCICLOVIR. [Concomitant]
     Active Substance: GANCICLOVIR
  23. MAGNESIUM SULFATE. [Concomitant]
     Active Substance: MAGNESIUM SULFATE

REACTIONS (2)
  - Anti-erythrocyte antibody [Unknown]
  - Kidney transplant rejection [Unknown]

NARRATIVE: CASE EVENT DATE: 20150616
